FAERS Safety Report 6245696-7 (Version None)
Quarter: 2009Q2

REPORT INFORMATION
  Report Type: 
  Country: None (occurrence: None)
  Receive Date: 20090625
  Receipt Date: 20090615
  Transmission Date: 20091009
  Serious: Yes (Other)
  Sender: FDA-Public Use
  Company Number: AT-GENENTECH-285527

PATIENT

DRUGS (8)
  1. MABTHERA [Suspect]
     Indication: MANTLE CELL LYMPHOMA
     Dosage: UNK
     Route: 065
  2. CYCLOPHOSPHAMIDE [Suspect]
     Indication: MANTLE CELL LYMPHOMA
     Dosage: UNK
     Route: 065
  3. HYDROXYDAUNORUBICIN [Suspect]
     Indication: MANTLE CELL LYMPHOMA
     Dosage: UNK
     Route: 065
  4. VINCRISTINE [Suspect]
     Indication: MANTLE CELL LYMPHOMA
     Dosage: UNK
     Route: 065
  5. PREDNISONE [Suspect]
     Indication: MANTLE CELL LYMPHOMA
     Dosage: UNK
     Route: 065
  6. PREDNISOLONE [Suspect]
     Indication: MANTLE CELL LYMPHOMA
     Dosage: UNK
     Route: 065
  7. THALIDOMIDE [Suspect]
     Indication: MANTLE CELL LYMPHOMA
     Dosage: 200 MG, UNK
     Route: 065
  8. DALTEPARIN SODIUM [Suspect]
     Indication: THROMBOSIS PROPHYLAXIS
     Route: 058

REACTIONS (1)
  - DEEP VEIN THROMBOSIS [None]
